FAERS Safety Report 9267393 (Version 1)
Quarter: 2013Q2

REPORT INFORMATION
  Report Type: Spontaneous
  Country: GB (occurrence: GB)
  Receive Date: 20130502
  Receipt Date: 20130502
  Transmission Date: 20140414
  Serious: Yes (Other)
  Sender: FDA-Public Use
  Company Number: GB-ABBOTT-13P-167-1083291-00

PATIENT
  Sex: Female

DRUGS (1)
  1. HUMIRA [Suspect]
     Indication: PSORIASIS
     Dates: start: 20130320

REACTIONS (4)
  - Hypoaesthesia [Unknown]
  - Hypoaesthesia oral [Unknown]
  - Vision blurred [Unknown]
  - Dysphagia [Unknown]
